FAERS Safety Report 18128589 (Version 1)
Quarter: 2020Q3

REPORT INFORMATION
  Report Type: Spontaneous
  Country: US (occurrence: US)
  Receive Date: 20200807
  Receipt Date: 20200807
  Transmission Date: 20201103
  Serious: Yes (Other)
  Sender: FDA-Public Use
  Company Number: None

PATIENT
  Age: 51 Year
  Sex: Female
  Weight: 104.7 kg

DRUGS (1)
  1. PANZYGA [Suspect]
     Active Substance: HUMAN IMMUNOGLOBULIN G
     Indication: CARDIOVASCULAR DISORDER
     Route: 042
     Dates: start: 20200728

REACTIONS (13)
  - Sleep talking [None]
  - Vision blurred [None]
  - Strabismus [None]
  - Spinal pain [None]
  - Dysuria [None]
  - Headache [None]
  - Seizure [None]
  - Eye pain [None]
  - Meningitis aseptic [None]
  - Neck pain [None]
  - Neuralgia [None]
  - Musculoskeletal stiffness [None]
  - Dyskinesia [None]

NARRATIVE: CASE EVENT DATE: 20200806
